FAERS Safety Report 15632319 (Version 2)
Quarter: 2021Q2

REPORT INFORMATION
  Report Type: Report from Study
  Country: US (occurrence: US)
  Receive Date: 20181119
  Receipt Date: 20210629
  Transmission Date: 20210716
  Serious: Yes (Death)
  Sender: FDA-Public Use
  Company Number: US-PFIZER INC-2018471354

PATIENT

DRUGS (2)
  1. CYTARABINE. [Suspect]
     Active Substance: CYTARABINE
     Indication: ACUTE MYELOID LEUKAEMIA
     Dosage: 3000 MG/M2, DAILY, (OVER THREE HOURS ON DAYS 1 TO 5, HIGH DOSE)
     Route: 040
  2. MITOXANTRONE HCL [Suspect]
     Active Substance: MITOXANTRONE HYDROCHLORIDE
     Indication: ACUTE MYELOID LEUKAEMIA
     Dosage: UNK, SINGLE, (ONCE ON THE SECOND DAY, IMMEDIATELY AFTER THE COMPLETION OF CYTARABINE INFUSION)

REACTIONS (1)
  - Toxicity to various agents [Fatal]
